FAERS Safety Report 23146446 (Version 2)
Quarter: 2024Q1

REPORT INFORMATION
  Report Type: Spontaneous
  Country: US (occurrence: US)
  Receive Date: 20231104
  Receipt Date: 20240201
  Transmission Date: 20240410
  Serious: No
  Sender: FDA-Public Use
  Company Number: US-GLENMARK PHARMACEUTICALS-2023GMK085753

PATIENT

DRUGS (2)
  1. RYALTRIS [Suspect]
     Active Substance: MOMETASONE FUROATE MONOHYDRATE\OLOPATADINE HYDROCHLORIDE
     Indication: Eustachian tube disorder
     Dosage: TWO SPRAYS IN EACH NOSTRIL, BID (TWO SPRAYS IN EACH NOSTRIL, TWICE A DAY)
     Route: 045
  2. RYALTRIS [Suspect]
     Active Substance: MOMETASONE FUROATE MONOHYDRATE\OLOPATADINE HYDROCHLORIDE
     Dosage: TWO SPRAYS IN EACH NOSTRIL, BID (TWO SPRAYS IN EACH NOSTRIL, TWICE A DAY)
     Route: 045

REACTIONS (2)
  - Product use in unapproved indication [Unknown]
  - Device delivery system issue [Unknown]
